FAERS Safety Report 8560168-2 (Version None)
Quarter: 2012Q3

REPORT INFORMATION
  Report Type: 
  Country: None (occurrence: None)
  Receive Date: 20120802
  Receipt Date: 20120727
  Transmission Date: 20120928
  Serious: Yes (Hospitalization, Other)
  Sender: FDA-Public Use
  Company Number: US-009507513-1108USA01228

PATIENT

DRUGS (4)
  1. FOSAMAX [Suspect]
     Dosage: 70 MG, QW
     Route: 048
     Dates: start: 20081007, end: 20090622
  2. FOSAMAX [Suspect]
     Indication: OSTEOPOROSIS
     Dosage: UNK UNK, QW
     Route: 048
     Dates: start: 20000401, end: 20100313
  3. FOSAMAX [Suspect]
     Indication: OSTEOPENIA
     Dosage: 70 MG, QW
     Route: 048
     Dates: start: 20070905, end: 20080122
  4. FOSAMAX [Suspect]
     Dosage: 70 MG, QW
     Route: 048
     Dates: start: 20080221, end: 20080903

REACTIONS (43)
  - FALL [None]
  - DEPRESSED MOOD [None]
  - JOINT INJURY [None]
  - PUBIS FRACTURE [None]
  - GROIN PAIN [None]
  - AMNESIA [None]
  - DEVICE BREAKAGE [None]
  - ANAEMIA [None]
  - COLONIC POLYP [None]
  - STRESS FRACTURE [None]
  - GINGIVAL BLEEDING [None]
  - TEMPOROMANDIBULAR JOINT SYNDROME [None]
  - STRESS [None]
  - IMPAIRED HEALING [None]
  - FRACTURE NONUNION [None]
  - GASTROOESOPHAGEAL REFLUX DISEASE [None]
  - OSTEOARTHRITIS [None]
  - HYPOKALAEMIA [None]
  - HIP FRACTURE [None]
  - TOOTHACHE [None]
  - BURSITIS [None]
  - DEVICE FAILURE [None]
  - TOOTH DISORDER [None]
  - SINUS DISORDER [None]
  - BACTERIAL DISEASE CARRIER [None]
  - FRACTURE DISPLACEMENT [None]
  - CYST [None]
  - TOOTH FRACTURE [None]
  - SEROMA [None]
  - GAIT DISTURBANCE [None]
  - NEURITIS [None]
  - HERPES VIRUS INFECTION [None]
  - EPICONDYLITIS [None]
  - ADVERSE EVENT [None]
  - PAIN IN JAW [None]
  - DENTAL CARIES [None]
  - FEMUR FRACTURE [None]
  - STRESS URINARY INCONTINENCE [None]
  - TENDON DISORDER [None]
  - BREAST CYST [None]
  - TOOTH IMPACTED [None]
  - BONE GRAFT [None]
  - STAPHYLOCOCCAL INFECTION [None]
